FAERS Safety Report 25343532 (Version 2)
Quarter: 2025Q2

REPORT INFORMATION
  Report Type: Spontaneous
  Country: PL (occurrence: PL)
  Receive Date: 20250521
  Receipt Date: 20250617
  Transmission Date: 20250717
  Serious: Yes (Other)
  Sender: BAYER HEALTHCARE PHARMACEUTICALS INC.
  Company Number: PL-BAYER-2025A066126

PATIENT
  Age: 71 Year
  Sex: Male

DRUGS (3)
  1. NUBEQA [Suspect]
     Active Substance: DAROLUTAMIDE
     Dosage: 600 MG, BID
     Dates: start: 20240808
  2. DOCETAXEL [Suspect]
     Active Substance: DOCETAXEL
     Dates: start: 20240905
  3. PREDNISONE [Concomitant]
     Active Substance: PREDNISONE
     Dates: start: 20240905

REACTIONS (3)
  - Polyneuropathy [Not Recovered/Not Resolved]
  - Pain in extremity [Recovered/Resolved]
  - Muscle spasms [Recovered/Resolved]

NARRATIVE: CASE EVENT DATE: 20240926
